FAERS Safety Report 7673376-X (Version None)
Quarter: 2011Q3

REPORT INFORMATION
  Report Type: 
  Country: None (occurrence: None)
  Receive Date: 20110810
  Receipt Date: 20110802
  Transmission Date: 20111222
  Serious: Yes (Hospitalization, Other)
  Sender: FDA-Public Use
  Company Number: US-BAYER-201039162NA

PATIENT
  Age: 44 Year
  Sex: Female
  Weight: 53.968 kg

DRUGS (6)
  1. VITAMIN TAB [Concomitant]
  2. YAZ [Suspect]
     Indication: ACNE
  3. VITAMIN E [Concomitant]
  4. YAZ [Suspect]
     Indication: PRODUCT USED FOR UNKNOWN INDICATION
     Dosage: UNK UNK, UNK
     Route: 048
     Dates: start: 20071001, end: 20080922
  5. ASCORBIC ACID [Concomitant]
  6. GLUCOSAMINE [Concomitant]

REACTIONS (2)
  - DEEP VEIN THROMBOSIS [None]
  - PULMONARY EMBOLISM [None]
